FAERS Safety Report 9975929 (Version 1)
Quarter: 2014Q1

REPORT INFORMATION
  Report Type: Spontaneous
  Country: US (occurrence: US)
  Receive Date: 20140306
  Receipt Date: 20140306
  Transmission Date: 20141002
  Serious: No
  Sender: FDA-Public Use
  Company Number: US-PFIZER INC-2014060147

PATIENT
  Age: 62 Year
  Sex: Female
  Weight: 86.17 kg

DRUGS (4)
  1. ZOLOFT [Suspect]
     Dosage: UNK
  2. NORVASC [Suspect]
     Dosage: UNK
  3. NEURONTIN [Suspect]
     Dosage: UNK
  4. DAYPRO [Suspect]
     Dosage: UNK

REACTIONS (3)
  - Glucose tolerance impaired [Unknown]
  - Hypertriglyceridaemia [Unknown]
  - Overweight [Unknown]
